FAERS Safety Report 5347587-2 (Version None)
Quarter: 2007Q2

REPORT INFORMATION
  Report Type: 
  Country: None (occurrence: None)
  Receive Date: 20070606
  Receipt Date: 20070530
  Transmission Date: 20071010
  Serious: Yes (Hospitalization)
  Sender: FDA-Public Use
  Company Number: DE-AVENTIS-200710619DE

PATIENT
  Age: 60 Year
  Sex: Female
  Weight: 74 kg

DRUGS (4)
  1. DOCETAXEL [Suspect]
     Indication: BREAST CANCER
     Route: 041
     Dates: start: 20070123, end: 20070123
  2. GEMCITABINE [Suspect]
     Indication: BREAST CANCER
     Route: 041
     Dates: start: 20070123, end: 20070123
  3. FORTECORTIN                        /00016001/ [Concomitant]
     Indication: PREMEDICATION
     Route: 042
     Dates: start: 20070123, end: 20070123
  4. GRANOCYTES [Concomitant]
     Indication: NEUTROPENIA
     Route: 058
     Dates: start: 20070103, end: 20070103

REACTIONS (1)
  - ANXIETY [None]
